FAERS Safety Report 9786319 (Version 4)
Quarter: 2014Q3

REPORT INFORMATION
  Report Type: Spontaneous
  Country: FR (occurrence: FR)
  Receive Date: 20131227
  Receipt Date: 20140709
  Transmission Date: 20150326
  Serious: Yes (Other)
  Sender: FDA-Public Use
  Company Number: FR-US-EMD SERONO, INC.-7254197

PATIENT
  Sex: Female

DRUGS (4)
  1. APROVEL [Concomitant]
     Active Substance: IRBESARTAN
     Indication: HYPERTENSION
  2. REBIF [Suspect]
     Active Substance: INTERFERON BETA-1A
     Indication: MULTIPLE SCLEROSIS
     Dates: start: 2006, end: 20131122
  3. OLMESARTAN/HYDROCHLOROTHIAZIDE [Concomitant]
     Indication: HYPERTENSION
     Dosage: 40/25
  4. ISOPTIN [Concomitant]
     Active Substance: VERAPAMIL HYDROCHLORIDE
     Indication: HYPERTENSION

REACTIONS (2)
  - Injection site swelling [Unknown]
  - Sarcoidosis [Not Recovered/Not Resolved]

NARRATIVE: CASE EVENT DATE: 2013
